FAERS Safety Report 7532472-8 (Version None)
Quarter: 2011Q2

REPORT INFORMATION
  Report Type: 
  Country: None (occurrence: None)
  Receive Date: 20110608
  Receipt Date: 20110526
  Transmission Date: 20111010
  Serious: Yes (Other)
  Sender: FDA-Public Use
  Company Number: PHHY2011JP47050

PATIENT
  Sex: Male

DRUGS (14)
  1. IRBESARTAN [Concomitant]
     Dosage: 200 MG, UNK
  2. DOXAZOSIN MESYLATE [Concomitant]
     Indication: HYPERTENSION
     Dosage: 2 MG, UNK
  3. CARVEDILOL [Concomitant]
     Dosage: 10 MG, UNK
     Route: 048
  4. SOLDACTONE [Concomitant]
     Dosage: 200 MG, UNK
     Route: 048
     Dates: start: 20100121, end: 20100212
  5. ALISKIREN [Suspect]
     Indication: HYPERTENSION
     Dosage: 150 MG, DAILY
     Route: 048
     Dates: start: 20100210, end: 20100605
  6. IRBESARTAN [Concomitant]
     Indication: HYPERTENSION
     Dosage: 100 MG, UNK
     Dates: start: 20091219
  7. LASIX [Concomitant]
     Dosage: 80 MG, UNK
  8. LASIX [Concomitant]
     Dosage: 40 MG, UNK
     Route: 048
     Dates: start: 20091219
  9. ALDACTONE [Concomitant]
     Dosage: 200 MG, UNK
     Route: 048
     Dates: start: 20100213, end: 20100605
  10. CONIEL [Concomitant]
     Indication: HYPERTENSION
     Dosage: 4 MG, UNK
     Dates: start: 20091219
  11. CONIEL [Concomitant]
     Dosage: 8 MG, UNK
  12. DOXAZOSIN MESYLATE [Concomitant]
     Dosage: 8 MG, UNK
     Route: 048
  13. LASIX [Concomitant]
     Dosage: 160 MG, UNK
     Route: 048
  14. SOLDACTONE [Concomitant]
     Dosage: 100 MG, UNK
     Dates: start: 20100121

REACTIONS (2)
  - PLEURAL EFFUSION [None]
  - ASCITES [None]
